FAERS Safety Report 20776025 (Version 7)
Quarter: 2022Q4

REPORT INFORMATION
  Report Type: Report from Study
  Country: US (occurrence: US)
  Receive Date: 20220502
  Receipt Date: 20221208
  Transmission Date: 20230113
  Serious: No
  Sender: FDA-Public Use
  Company Number: US-NOVARTISTESTPH-NVSC2022US100827

PATIENT
  Sex: Female

DRUGS (3)
  1. COSENTYX [Suspect]
     Active Substance: SECUKINUMAB
     Indication: Psoriatic arthropathy
     Dosage: UNK
     Route: 065
  2. COSENTYX [Suspect]
     Active Substance: SECUKINUMAB
     Dosage: 300 MG, QMO
     Route: 065
  3. METHOTREXATE [Concomitant]
     Active Substance: METHOTREXATE
     Indication: Product used for unknown indication
     Dosage: UNK
     Route: 065

REACTIONS (14)
  - Injection site bruising [Unknown]
  - Neuralgia [Unknown]
  - Pain in extremity [Unknown]
  - Dysgeusia [Unknown]
  - Alopecia [Unknown]
  - Arthralgia [Unknown]
  - Meniscus injury [Unknown]
  - Feeling abnormal [Unknown]
  - Headache [Unknown]
  - Nervousness [Unknown]
  - Memory impairment [Unknown]
  - Injection site mass [Unknown]
  - Paraesthesia [Unknown]
  - Therapeutic product effect incomplete [Unknown]
